FAERS Safety Report 14493925 (Version 1)
Quarter: 2018Q1

REPORT INFORMATION
  Report Type: Spontaneous
  Country: US (occurrence: US)
  Receive Date: 20180205
  Receipt Date: 20180205
  Transmission Date: 20180509
  Serious: Yes (Disabling, Other)
  Sender: FDA-Public Use
  Company Number: None

PATIENT
  Age: 56 Year
  Sex: Male
  Weight: 85.05 kg

DRUGS (5)
  1. FISH OIL [Concomitant]
     Active Substance: FISH OIL
  2. LISNOPRIL 15 MG [Concomitant]
     Active Substance: LISINOPRIL
  3. LUCENTIS [Suspect]
     Active Substance: RANIBIZUMAB
     Indication: EYE DISORDER
     Dosage: OTHER FREQUENCY:JUST ONCE;OTHER ROUTE:INJECTED INTO THE EYE?
     Dates: start: 20171115
  4. ATORVASTATIN [Concomitant]
     Active Substance: ATORVASTATIN
  5. GLYBURIDE. [Concomitant]
     Active Substance: GLYBURIDE

REACTIONS (1)
  - Blindness unilateral [None]

NARRATIVE: CASE EVENT DATE: 20171227
